FAERS Safety Report 16819961 (Version 2)
Quarter: 2019Q4

REPORT INFORMATION
  Report Type: Spontaneous
  Country: US (occurrence: US)
  Receive Date: 20190918
  Receipt Date: 20191104
  Transmission Date: 20200122
  Serious: No
  Sender: FDA-Public Use
  Company Number: US-JNJFOC-20190905225

PATIENT
  Sex: Male

DRUGS (3)
  1. MENS ROGAINE [Suspect]
     Active Substance: MINOXIDIL
     Indication: MADAROSIS
     Dosage: VERY SMALL AMOUNT ON FINGERTIPS
     Route: 061
     Dates: start: 20100601
  2. LEVOTHYROXIN [Concomitant]
     Active Substance: LEVOTHYROXINE
     Indication: PRODUCT USED FOR UNKNOWN INDICATION
  3. LISINOPRIL. [Concomitant]
     Active Substance: LISINOPRIL
     Indication: PRODUCT USED FOR UNKNOWN INDICATION

REACTIONS (5)
  - Poor quality product administered [Unknown]
  - Product use in unapproved indication [Unknown]
  - Madarosis [Not Recovered/Not Resolved]
  - Product administered at inappropriate site [Unknown]
  - Expired product administered [Unknown]

NARRATIVE: CASE EVENT DATE: 2010
